FAERS Safety Report 6907946-0 (Version None)
Quarter: 2010Q3

REPORT INFORMATION
  Report Type: 
  Country: None (occurrence: None)
  Receive Date: 20100805
  Receipt Date: 20100722
  Transmission Date: 20110219
  Serious: Yes (Death)
  Sender: FDA-Public Use
  Company Number: AU-RANBAXY-2010RR-36617

PATIENT
  Age: 24 Year
  Sex: Male

DRUGS (4)
  1. MDMA [Suspect]
  2. METHAMPHETAMINE HYDROCHLORIDE [Suspect]
  3. MOCLOBEMIDE [Suspect]
  4. DEXTROAMPHETAMINE AND AMPHETAMINE SALTS [Suspect]

REACTIONS (3)
  - DRUG INTERACTION [None]
  - DRUG TOXICITY [None]
  - SEROTONIN SYNDROME [None]
